FAERS Safety Report 7311505-8 (Version None)
Quarter: 2011Q1

REPORT INFORMATION
  Report Type: 
  Country: None (occurrence: None)
  Receive Date: 20110224
  Receipt Date: 20110215
  Transmission Date: 20110831
  Serious: Yes (Other)
  Sender: FDA-Public Use
  Company Number: PHHY2011US12699

PATIENT
  Age: 40 Year
  Sex: Female

DRUGS (1)
  1. FANAPT [Suspect]
     Indication: SCHIZOPHRENIA
     Dosage: 1 MG, BID
     Route: 048

REACTIONS (2)
  - COORDINATION ABNORMAL [None]
  - DYSARTHRIA [None]
